FAERS Safety Report 4883027-5 (Version None)
Quarter: 2005Q4

REPORT INFORMATION
  Report Type: 
  Country: None (occurrence: None)
  Receive Date: 20051201
  Receipt Date: 20050901
  Transmission Date: 20060501
  Serious: No
  Sender: FDA-Public Use
  Company Number: 2005PV001767

PATIENT
  Age: 64 Year
  Sex: Female
  Weight: 90.7194 kg

DRUGS (5)
  1. BYETTA [Suspect]
     Indication: DIABETES MELLITUS NON-INSULIN-DEPENDENT
     Dosage: SEE IMAGE
     Route: 058
     Dates: start: 20050801, end: 20050930
  2. BYETTA [Suspect]
     Indication: DIABETES MELLITUS NON-INSULIN-DEPENDENT
     Dosage: SEE IMAGE
     Route: 058
     Dates: start: 20051005
  3. METFORMIN HCL [Concomitant]
  4. HYZAAR [Concomitant]
  5. TOPROL [Concomitant]

REACTIONS (12)
  - BLOOD GLUCOSE DECREASED [None]
  - COLD SWEAT [None]
  - DECREASED APPETITE [None]
  - DYSPEPSIA [None]
  - FEAR [None]
  - FEELING JITTERY [None]
  - MENTAL IMPAIRMENT [None]
  - NAUSEA [None]
  - PALPITATIONS [None]
  - SENSATION OF FOREIGN BODY [None]
  - STRESS [None]
  - WEIGHT DECREASED [None]
